FAERS Safety Report 9382706 (Version 2)
Quarter: 2013Q3

REPORT INFORMATION
  Report Type: Report from Study
  Country: US (occurrence: US)
  Receive Date: 20130703
  Receipt Date: 20130717
  Transmission Date: 20140515
  Serious: Yes (Other)
  Sender: FDA-Public Use
  Company Number: US-BRISTOL-MYERS SQUIBB COMPANY-19052067

PATIENT
  Age: 26 Year
  Sex: Female

DRUGS (4)
  1. DENENICOKIN [Suspect]
     Indication: MALIGNANT MELANOMA
     Dosage: THERAPY DATES:21MAY2013-03JUN13 150MCG/KG NO OF COURSE:2?04JUN-18JUN13,100MCG/KG,COURSES:3
     Route: 042
     Dates: start: 20130521, end: 20130618
  2. IPILIMUMAB [Suspect]
     Indication: MALIGNANT MELANOMA
     Route: 042
     Dates: start: 20130611, end: 20130618
  3. L-THYROXINE [Concomitant]
     Dates: start: 20130515
  4. HYDROXYZINE [Concomitant]
     Dates: start: 20130604

REACTIONS (3)
  - Lipase increased [Recovered/Resolved]
  - Alanine aminotransferase increased [Recovered/Resolved]
  - Aspartate aminotransferase increased [Recovered/Resolved]
